FAERS Safety Report 8356324-9 (Version None)
Quarter: 2012Q2

REPORT INFORMATION
  Report Type: 
  Country: None (occurrence: None)
  Receive Date: 20120514
  Receipt Date: 20120509
  Transmission Date: 20120825
  Serious: Yes (Death, Hospitalization)
  Sender: FDA-Public Use
  Company Number: CH-SANOFI-AVENTIS-2012SA033063

PATIENT
  Age: 82 Year
  Sex: Male
  Weight: 80 kg

DRUGS (24)
  1. MAGNESIUM ASPARTATE HYDROCHLORIDE [Concomitant]
     Route: 048
     Dates: end: 20120103
  2. DIPYRONE TAB [Concomitant]
     Dosage: DOSAGE REGIMEN: AS NECESSARY
     Route: 048
     Dates: end: 20120105
  3. RIFAMPICIN [Interacting]
     Route: 048
     Dates: end: 20120103
  4. NEURONTIN [Concomitant]
     Route: 048
     Dates: end: 20111229
  5. PLAVIX [Suspect]
     Route: 048
     Dates: end: 20110101
  6. MINOCYCLINE HYDROCHLORIDE [Interacting]
     Indication: INFECTION PROPHYLAXIS
     Route: 048
     Dates: start: 20111201, end: 20111201
  7. MINOCYCLINE HYDROCHLORIDE [Interacting]
     Route: 048
     Dates: end: 20120105
  8. XARELTO [Interacting]
     Route: 048
     Dates: start: 20110101, end: 20120103
  9. TORSEMIDE [Suspect]
     Route: 048
     Dates: end: 20110101
  10. TAMSULOSIN HYDROCHLORIDE [Concomitant]
     Route: 048
     Dates: end: 20120105
  11. ARTEOPTIC [Concomitant]
     Route: 047
     Dates: end: 20120105
  12. PANTOPRAZOLE [Suspect]
     Route: 048
     Dates: end: 20120105
  13. FLUTICASONE PROPIONATE/SALMETEROL [Concomitant]
     Dosage: RESPIRATORY INHALATION
     Route: 055
     Dates: end: 20120105
  14. PHENPROCOUMON [Concomitant]
     Dates: end: 20120105
  15. HALDOL [Concomitant]
     Dosage: HALDOL INFUSION
  16. RIFAMPICIN [Interacting]
     Route: 048
     Dates: start: 20111201, end: 20111227
  17. CANDESARTAN CILEXETIL AND HYDROCHLOROTHIAZIDE [Suspect]
     Route: 048
     Dates: end: 20111230
  18. METAMUCIL-2 [Concomitant]
     Route: 048
     Dates: end: 20111229
  19. HEPARIN [Concomitant]
     Dates: end: 20120105
  20. METHADONE HCL [Concomitant]
     Dosage: METHADONE INFUSION
  21. PREDNISOLONE [Concomitant]
     Dosage: 5 MG 1 IN THE MORNING
     Dates: end: 20111229
  22. ASPIRIN [Suspect]
     Route: 048
     Dates: end: 20120105
  23. NEBIVOLOL HCL [Concomitant]
     Route: 048
     Dates: end: 20120105
  24. HALCION [Concomitant]
     Route: 048
     Dates: end: 20111229

REACTIONS (9)
  - ASPARTATE AMINOTRANSFERASE INCREASED [None]
  - LIVER INJURY [None]
  - JAUNDICE [None]
  - DIARRHOEA [None]
  - BLOOD ALKALINE PHOSPHATASE INCREASED [None]
  - GAMMA-GLUTAMYLTRANSFERASE INCREASED [None]
  - ALANINE AMINOTRANSFERASE INCREASED [None]
  - VOMITING [None]
  - HYPERBILIRUBINAEMIA [None]
